FAERS Safety Report 23565332 (Version 1)
Quarter: 2024Q1

REPORT INFORMATION
  Report Type: Spontaneous
  Country: US (occurrence: None)
  Receive Date: 20240223
  Receipt Date: 20240223
  Transmission Date: 20240410
  Serious: Yes (Life-Threatening)
  Sender: FDA-Public Use
  Company Number: None

PATIENT
  Age: 34 Year
  Sex: Female
  Weight: 78.75 kg

DRUGS (1)
  1. .DELTA.8-TETRAHYDROCANNABINOL\HERBALS [Suspect]
     Active Substance: .DELTA.8-TETRAHYDROCANNABINOL\HERBALS
     Indication: Pain
     Dates: start: 20240212, end: 20240222

REACTIONS (13)
  - Dyspnoea [None]
  - Heart rate increased [None]
  - Loss of consciousness [None]
  - Blood pressure increased [None]
  - Tremor [None]
  - Amnesia [None]
  - White blood cell count increased [None]
  - Red blood cell count increased [None]
  - Blood glucose increased [None]
  - Cerebrovascular accident [None]
  - Panic attack [None]
  - Left atrial enlargement [None]
  - Myocardial infarction [None]

NARRATIVE: CASE EVENT DATE: 20240222
